FAERS Safety Report 16292412 (Version 2)
Quarter: 2021Q1

REPORT INFORMATION
  Report Type: Spontaneous
  Country: US (occurrence: US)
  Receive Date: 20190509
  Receipt Date: 20210202
  Transmission Date: 20210419
  Serious: Yes (Other)
  Sender: FDA-Public Use
  Company Number: US-ASTRAZENECA-2019SE62206

PATIENT
  Age: 55 Year
  Sex: Male
  Weight: 66.2 kg

DRUGS (59)
  1. PREVACID [Suspect]
     Active Substance: LANSOPRAZOLE
     Indication: GASTROOESOPHAGEAL REFLUX DISEASE
     Dosage: GENERIC
     Route: 065
     Dates: start: 2014, end: 2015
  2. LORATADINE. [Concomitant]
     Active Substance: LORATADINE
  3. PREVACID [Suspect]
     Active Substance: LANSOPRAZOLE
     Indication: GASTROOESOPHAGEAL REFLUX DISEASE
     Route: 065
     Dates: start: 2012, end: 2019
  4. BENZONATATE. [Concomitant]
     Active Substance: BENZONATATE
  5. AMBIEN [Concomitant]
     Active Substance: ZOLPIDEM TARTRATE
  6. RANITIDINE. [Concomitant]
     Active Substance: RANITIDINE
  7. FLUTICASONE. [Concomitant]
     Active Substance: FLUTICASONE
  8. PRILOSEC [Suspect]
     Active Substance: OMEPRAZOLE MAGNESIUM
     Indication: GASTROOESOPHAGEAL REFLUX DISEASE
     Route: 048
     Dates: start: 2012, end: 2019
  9. NAPROXEN. [Concomitant]
     Active Substance: NAPROXEN
     Indication: NECK PAIN
     Route: 065
     Dates: start: 201001, end: 201502
  10. NIZATIDINE. [Concomitant]
     Active Substance: NIZATIDINE
  11. METFORMIN [Concomitant]
     Active Substance: METFORMIN HYDROCHLORIDE
  12. IBUPROFEN. [Concomitant]
     Active Substance: IBUPROFEN
  13. SERTRALINE [Concomitant]
     Active Substance: SERTRALINE HYDROCHLORIDE
  14. LIDODERM [Concomitant]
     Active Substance: LIDOCAINE
  15. DICYCLOMINE [Concomitant]
     Active Substance: DICYCLOMINE HYDROCHLORIDE
  16. PRILOSEC [Suspect]
     Active Substance: OMEPRAZOLE MAGNESIUM
     Indication: GASTROOESOPHAGEAL REFLUX DISEASE
     Dosage: GENERIC
     Route: 065
     Dates: start: 2016, end: 2019
  17. PRILOSEC OTC [Suspect]
     Active Substance: OMEPRAZOLE MAGNESIUM
     Indication: GASTROOESOPHAGEAL REFLUX DISEASE
     Route: 048
     Dates: start: 2012, end: 2019
  18. DEXILANT [Suspect]
     Active Substance: DEXLANSOPRAZOLE
     Route: 065
     Dates: start: 2012, end: 2019
  19. TRAMADOL. [Concomitant]
     Active Substance: TRAMADOL
     Indication: PAIN
     Dates: start: 201404
  20. NYSTATIN. [Concomitant]
     Active Substance: NYSTATIN
  21. VISTARIL [Concomitant]
     Active Substance: HYDROXYZINE PAMOATE
  22. CROMOLYN [Concomitant]
     Active Substance: CROMOLYN
  23. TRAMADOL. [Concomitant]
     Active Substance: TRAMADOL
  24. VICODIN [Concomitant]
     Active Substance: ACETAMINOPHEN\HYDROCODONE BITARTRATE
  25. DIAZEPAM. [Concomitant]
     Active Substance: DIAZEPAM
  26. ROSUVASTATIN. [Concomitant]
     Active Substance: ROSUVASTATIN
  27. ZANTAC [Concomitant]
     Active Substance: RANITIDINE HYDROCHLORIDE
     Dates: start: 2014, end: 2016
  28. COZAAR [Concomitant]
     Active Substance: LOSARTAN POTASSIUM
  29. MIRTAZAPINE. [Concomitant]
     Active Substance: MIRTAZAPINE
  30. GABAPENTIN. [Concomitant]
     Active Substance: GABAPENTIN
  31. MUPIROCIN. [Concomitant]
     Active Substance: MUPIROCIN
  32. KETOCONAZOLE. [Concomitant]
     Active Substance: KETOCONAZOLE
  33. TAMSULOSIN [Concomitant]
     Active Substance: TAMSULOSIN
  34. PEPCID [Concomitant]
     Active Substance: FAMOTIDINE
     Dates: start: 2014, end: 2016
  35. RELPAX [Concomitant]
     Active Substance: ELETRIPTAN HYDROBROMIDE
  36. XIFAXAN [Concomitant]
     Active Substance: RIFAXIMIN
  37. CLOBATESOL [Concomitant]
  38. CRESTOR [Concomitant]
     Active Substance: ROSUVASTATIN CALCIUM
  39. ALBUTEROL. [Concomitant]
     Active Substance: ALBUTEROL
  40. HYDROCODONE [Concomitant]
     Active Substance: HYDROCODONE
  41. PRILOSEC [Suspect]
     Active Substance: OMEPRAZOLE MAGNESIUM
     Indication: GASTROOESOPHAGEAL REFLUX DISEASE
     Route: 048
     Dates: start: 201301, end: 201710
  42. PRILOSEC OTC [Suspect]
     Active Substance: OMEPRAZOLE MAGNESIUM
     Indication: GASTROOESOPHAGEAL REFLUX DISEASE
     Route: 048
     Dates: start: 201301, end: 201710
  43. PROTONIX [Suspect]
     Active Substance: PANTOPRAZOLE SODIUM
     Indication: GASTROOESOPHAGEAL REFLUX DISEASE
     Dosage: MR
     Route: 048
     Dates: start: 20140626
  44. NAPROXEN. [Concomitant]
     Active Substance: NAPROXEN
     Indication: BACK PAIN
     Route: 065
     Dates: start: 201001, end: 201502
  45. SERTRALINE [Concomitant]
     Active Substance: SERTRALINE HYDROCHLORIDE
     Indication: DEPRESSION
     Route: 065
     Dates: start: 20100118
  46. TAGAMET [Concomitant]
     Active Substance: CIMETIDINE
     Dates: start: 2014, end: 2016
  47. VOLTAREN [Concomitant]
     Active Substance: DICLOFENAC SODIUM
  48. ADVAIR DISKUS [Concomitant]
     Active Substance: FLUTICASONE PROPIONATE\SALMETEROL XINAFOATE
  49. FLONASE [Concomitant]
     Active Substance: FLUTICASONE PROPIONATE
  50. ENSURE [Concomitant]
     Active Substance: AMINO ACIDS\DEXTROSE\ELECTROLYTES NOS\SOYBEAN OIL\VITAMINS
  51. AMITRIPTYLINE [Concomitant]
     Active Substance: AMITRIPTYLINE
  52. ALPREX [Concomitant]
  53. DEXILANT [Suspect]
     Active Substance: DEXLANSOPRAZOLE
     Route: 065
     Dates: start: 201301, end: 201710
  54. PROTONIX [Suspect]
     Active Substance: PANTOPRAZOLE SODIUM
     Indication: GASTROOESOPHAGEAL REFLUX DISEASE
     Route: 065
     Dates: start: 2012, end: 2019
  55. PROTONIX [Suspect]
     Active Substance: PANTOPRAZOLE SODIUM
     Indication: GASTROOESOPHAGEAL REFLUX DISEASE
     Dosage: GENERIC
     Route: 065
     Dates: start: 2014, end: 2017
  56. VITAMIN D [Concomitant]
     Active Substance: VITAMIN D NOS
     Indication: BLOOD CALCIUM DECREASED
     Dates: start: 20180511
  57. AXID [Concomitant]
     Active Substance: NIZATIDINE
     Dates: start: 2014, end: 2016
  58. PROAIR HFA [Concomitant]
     Active Substance: ALBUTEROL SULFATE
  59. NASONEX [Concomitant]
     Active Substance: MOMETASONE FUROATE

REACTIONS (2)
  - Chronic kidney disease [Not Recovered/Not Resolved]
  - Tubulointerstitial nephritis [Not Recovered/Not Resolved]

NARRATIVE: CASE EVENT DATE: 2015
